FAERS Safety Report 4371491-X (Version None)
Quarter: 2004Q2

REPORT INFORMATION
  Report Type: 
  Country: None (occurrence: None)
  Receive Date: 20040602
  Receipt Date: 20040520
  Transmission Date: 20050107
  Serious: Yes (Other)
  Sender: FDA-Public Use
  Company Number: 2004034119

PATIENT
  Age: 47 Year
  Sex: Female
  Weight: 71.6683 kg

DRUGS (13)
  1. NEURONTIN [Suspect]
     Indication: NEUROPATHY
     Dosage: 2400 MG (600 MG, 4 IN 1 D), ORAL
     Route: 048
     Dates: start: 20031030
  2. FUROSEMIDE [Concomitant]
  3. METFORMIN HCL [Concomitant]
  4. PIOGLITAZONE HCL [Concomitant]
  5. GLIMEPIRIDE (PIOGLITAZONE) [Concomitant]
  6. GLIMEPIRIDE (GLIMEPRIDE) [Concomitant]
  7. ROFECOXIB [Concomitant]
  8. CETIRIZINE HCL [Concomitant]
  9. RAMIPRIL [Concomitant]
  10. ZOLPIDEM TARTRATE [Concomitant]
  11. AMITRIPTLYINE (AMITRIPTYLINE) [Concomitant]
  12. ACETYLSALICYLIC ACID SRT [Concomitant]
  13. ULTRACET [Concomitant]

REACTIONS (3)
  - DEVICE FAILURE [None]
  - POST PROCEDURAL COMPLICATION [None]
  - WEIGHT INCREASED [None]
